FAERS Safety Report 10228915 (Version 1)
Quarter: 2014Q2

REPORT INFORMATION
  Report Type: Spontaneous
  Country: US (occurrence: US)
  Receive Date: 20140610
  Receipt Date: 20140610
  Transmission Date: 20141212
  Serious: Yes (Hospitalization)
  Sender: FDA-Public Use
  Company Number: US-GLAXOSMITHKLINE-A0971170A

PATIENT
  Age: 77 Year
  Sex: Female

DRUGS (9)
  1. ADVAIR [Suspect]
     Indication: ASTHMA
     Dosage: 1PUFF TWICE PER DAY
     Route: 055
  2. JANUVIA [Concomitant]
  3. ARIMIDEX [Concomitant]
  4. DIAZIDE [Concomitant]
  5. VALIUM [Concomitant]
  6. CALCIUM [Concomitant]
  7. OTC VITAMINS [Concomitant]
  8. KEFLEX [Concomitant]
  9. BLOOD PRESSURE MEDICATION [Concomitant]

REACTIONS (9)
  - Chronic lymphocytic leukaemia [Not Recovered/Not Resolved]
  - Breast cancer [Recovered/Resolved]
  - Diabetes mellitus [Not Recovered/Not Resolved]
  - Mastectomy [Unknown]
  - Chemotherapy [Unknown]
  - Asthma [Unknown]
  - Dyspnoea [Not Recovered/Not Resolved]
  - Drug ineffective [Unknown]
  - Product quality issue [Unknown]
